FAERS Safety Report 5811630-4 (Version None)
Quarter: 2008Q3

REPORT INFORMATION
  Report Type: 
  Country: None (occurrence: None)
  Receive Date: 20080716
  Receipt Date: 20080714
  Transmission Date: 20090109
  Serious: Yes (Other)
  Sender: FDA-Public Use
  Company Number: US-ASTRAZENECA-2008UW08899

PATIENT
  Age: 508 Month
  Sex: Male
  Weight: 79.5 kg

DRUGS (6)
  1. SEROQUEL [Suspect]
     Indication: BIPOLAR DISORDER
     Dosage: 25 MG - 50 MG
     Route: 048
     Dates: start: 20060601, end: 20070101
  2. SEROQUEL [Suspect]
     Indication: DEPRESSION
     Dosage: 25 MG - 50 MG
     Route: 048
     Dates: start: 20060601, end: 20070101
  3. ABILIFY [Concomitant]
     Dates: start: 20080401
  4. THORAZINE [Concomitant]
     Dates: start: 20060101
  5. ZOLOFT [Concomitant]
     Dosage: VARIOUS, INCLUDING BUT NOT LIMITED TO 150 MG
     Dates: start: 19890101
  6. TRAZODONE HCL [Concomitant]
     Dosage: VARIOUS DOSES, INCLUDING BUT NOT LIMITED TO 100 MG
     Dates: start: 19890101

REACTIONS (4)
  - DIABETES MELLITUS [None]
  - HEPATIC CIRRHOSIS [None]
  - PANCREATITIS [None]
  - SUICIDE ATTEMPT [None]
